FAERS Safety Report 21029808 (Version 5)
Quarter: 2022Q3

REPORT INFORMATION
  Report Type: Spontaneous
  Country: US (occurrence: US)
  Receive Date: 20220630
  Receipt Date: 20220914
  Transmission Date: 20221026
  Serious: No
  Sender: FDA-Public Use
  Company Number: US-BIOVITRUM-2022US08357

PATIENT
  Age: 64 Year
  Sex: Female

DRUGS (3)
  1. KINERET [Suspect]
     Active Substance: ANAKINRA
     Indication: Still^s disease
     Dates: start: 20220614
  2. KINERET [Suspect]
     Active Substance: ANAKINRA
     Dates: start: 20220603
  3. KINERET [Suspect]
     Active Substance: ANAKINRA
     Dates: start: 20220623

REACTIONS (7)
  - Abdominal discomfort [Unknown]
  - Joint stiffness [Unknown]
  - Arthralgia [Unknown]
  - Dermatitis [Recovering/Resolving]
  - COVID-19 [Unknown]
  - Injection site pain [Unknown]
  - Off label use [Unknown]

NARRATIVE: CASE EVENT DATE: 20220623
